FAERS Safety Report 20231946 (Version 1)
Quarter: 2021Q4

REPORT INFORMATION
  Report Type: Spontaneous
  Country: DE (occurrence: DE)
  Receive Date: 20211227
  Receipt Date: 20211227
  Transmission Date: 20220303
  Serious: Yes (Hospitalization)
  Sender: FDA-Public Use
  Company Number: DE-NOVARTISPH-NVSC2021DE292357

PATIENT
  Age: 61 Year
  Sex: Female

DRUGS (7)
  1. PREDNISOLONE [Suspect]
     Active Substance: PREDNISOLONE
     Indication: Product used for unknown indication
     Dosage: 20 MG (1-0.5-1-0)
     Route: 065
  2. CANDESARTAN [Concomitant]
     Active Substance: CANDESARTAN
     Indication: Product used for unknown indication
     Dosage: 16 MG (0.5-0-0-0 )
     Route: 065
  3. FENTANYL [Concomitant]
     Active Substance: FENTANYL
     Indication: Product used for unknown indication
     Dosage: 50 UG (SCHEMA, PFLASTER TRANSDERMAL)
     Route: 065
  4. NEBIVOLOL [Concomitant]
     Active Substance: NEBIVOLOL
     Indication: Product used for unknown indication
     Dosage: 5 MG (1-0-0.5-0)
     Route: 065
  5. METAMIZOLE SODIUM [Concomitant]
     Active Substance: METAMIZOLE SODIUM
     Indication: Product used for unknown indication
     Dosage: 500 MG (1-1-1-0)
     Route: 065
  6. IPRATROPIUMBROMID ARROW [Concomitant]
     Indication: Product used for unknown indication
     Dosage: (BEDARF, DOSIERAEROSOL)
     Route: 065
  7. ALBUTEROL [Concomitant]
     Active Substance: ALBUTEROL
     Indication: Product used for unknown indication
     Dosage: (SCHEMA, DOSIERAEROSOL)
     Route: 065

REACTIONS (7)
  - Hypokalaemia [Unknown]
  - Systemic infection [Unknown]
  - Pyrexia [Unknown]
  - General physical health deterioration [Unknown]
  - Tachycardia [Unknown]
  - Coronavirus infection [Unknown]
  - Dyspnoea [Unknown]
